FAERS Safety Report 8984175 (Version 1)
Quarter: 2012Q4

REPORT INFORMATION
  Report Type: Spontaneous
  Country: US (occurrence: None)
  Receive Date: 20121213
  Receipt Date: 20121213
  Transmission Date: 20130627
  Serious: Yes (Other)
  Sender: FDA-Public Use
  Company Number: VAL_01162_2012

PATIENT
  Sex: Female

DRUGS (6)
  1. METOPROLOL TARTRATE [Suspect]
     Indication: HEART RATE IRREGULAR
     Route: 048
  2. METOPROLOL TARTRATE [Suspect]
     Indication: HEART RATE IRREGULAR
     Route: 048
  3. METOPROLOL TARTRATE [Suspect]
     Indication: HEART RATE IRREGULAR
     Route: 048
  4. PAXIL [Suspect]
  5. RAMIPRIL [Concomitant]
  6. PRAVASTATIN [Concomitant]

REACTIONS (2)
  - Heart rate increased [None]
  - Drug intolerance [None]
